FAERS Safety Report 13142767 (Version 1)
Quarter: 2017Q1

REPORT INFORMATION
  Report Type: Spontaneous
  Country: US (occurrence: US)
  Receive Date: 20170123
  Receipt Date: 20170123
  Transmission Date: 20170428
  Serious: No
  Sender: FDA-Public Use
  Company Number: US-ALLERGAN-1653784US

PATIENT
  Sex: Female

DRUGS (2)
  1. VAGIFEM [Concomitant]
     Active Substance: ESTRADIOL
     Indication: VULVOVAGINAL DRYNESS
     Dosage: UNK UNK, BID
  2. GELNIQUE [Suspect]
     Active Substance: OXYBUTYNIN
     Indication: VULVOVAGINAL DRYNESS
     Dosage: UNK
     Route: 061
     Dates: start: 2015

REACTIONS (3)
  - Off label use [Unknown]
  - Blood urine present [Unknown]
  - Urinary tract infection [Unknown]
